FAERS Safety Report 24982002 (Version 1)
Quarter: 2025Q1

REPORT INFORMATION
  Report Type: Spontaneous
  Country: IT (occurrence: IT)
  Receive Date: 20250218
  Receipt Date: 20250218
  Transmission Date: 20250408
  Serious: Yes (Other)
  Sender: BASILEA PHARMACEUTICA
  Company Number: IT-BASILEA PHARMACEUTICA INTERNATIONAL AG ALLSCHWIL-IT-BAS-25-00205

PATIENT
  Age: 60 Year
  Sex: Female

DRUGS (6)
  1. CEFTOBIPROLE MEDOCARIL SODIUM [Suspect]
     Active Substance: CEFTOBIPROLE MEDOCARIL SODIUM
     Indication: Product used for unknown indication
     Dosage: 500 MG, TID
     Route: 065
     Dates: start: 20250103, end: 20250111
  2. DEXMEDETOMIDINE HYDROCHLORIDE [Suspect]
     Active Substance: DEXMEDETOMIDINE HYDROCHLORIDE
     Indication: Product used for unknown indication
     Dosage: 2 MILLILITER, QH
     Route: 042
     Dates: start: 20250109, end: 20250109
  3. CEFAZOLIN [Suspect]
     Active Substance: CEFAZOLIN
     Indication: Product used for unknown indication
     Dosage: 2 GRAM, TID
     Route: 042
     Dates: start: 20250111, end: 20250111
  4. ENOXAPARIN SODIUM [Concomitant]
     Active Substance: ENOXAPARIN SODIUM
     Indication: Product used for unknown indication
     Route: 065
     Dates: start: 20241227
  5. FLUIMUCIL [ACETYLCYSTEINE] [Concomitant]
     Indication: Product used for unknown indication
     Route: 065
     Dates: start: 20250103
  6. PANTOPRAZOLE [Concomitant]
     Active Substance: PANTOPRAZOLE
     Indication: Product used for unknown indication
     Dates: start: 20241224

REACTIONS (2)
  - Dermatitis bullous [Recovered/Resolved]
  - Rash papular [Recovered/Resolved]

NARRATIVE: CASE EVENT DATE: 20250111
